FAERS Safety Report 22298233 (Version 1)
Quarter: 2023Q2

REPORT INFORMATION
  Report Type: Spontaneous
  Country: FR (occurrence: FR)
  Receive Date: 20230509
  Receipt Date: 20230509
  Transmission Date: 20230722
  Serious: Yes (Death, Hospitalization, Congenital Anomaly)
  Sender: FDA-Public Use
  Company Number: None

PATIENT
  Age: 24 Week
  Sex: Female
  Weight: 0.918 kg

DRUGS (1)
  1. APIXABAN [Suspect]
     Active Substance: APIXABAN
     Route: 064
     Dates: start: 20211008, end: 20220413

REACTIONS (3)
  - Retroplacental haematoma [Fatal]
  - Dandy-Walker syndrome [Fatal]
  - Foetal death [Fatal]
